FAERS Safety Report 20857965 (Version 1)
Quarter: 2022Q2

REPORT INFORMATION
  Report Type: Report from Study
  Country: US (occurrence: US)
  Receive Date: 20220521
  Receipt Date: 20220521
  Transmission Date: 20220721
  Serious: No
  Sender: FDA-Public Use
  Company Number: US-NOVARTISTESTPH-NVSC2021US257591

PATIENT
  Sex: Male

DRUGS (1)
  1. AFINITOR [Suspect]
     Active Substance: EVEROLIMUS
     Indication: Astrocytoma, low grade
     Dosage: 20 MG, QD
     Route: 048
     Dates: start: 20150220

REACTIONS (3)
  - Post procedural complication [Recovering/Resolving]
  - Kyphosis [Recovering/Resolving]
  - Scoliosis [Recovering/Resolving]
